FAERS Safety Report 9916114 (Version 1)
Quarter: 2014Q1

REPORT INFORMATION
  Report Type: Other
  Country: CZ (occurrence: CZ)
  Receive Date: 20140221
  Receipt Date: 20140221
  Transmission Date: 20141002
  Serious: Yes (Death, Other)
  Sender: FDA-Public Use
  Company Number: CZ-BRISTOL-MYERS SQUIBB COMPANY-20247599

PATIENT
  Age: 52 Year
  Sex: Male

DRUGS (2)
  1. CETUXIMAB [Suspect]
     Indication: PLASMA CELL MYELOMA
  2. CYCLOPHOSPHAMIDE [Suspect]
     Indication: PLASMA CELL MYELOMA

REACTIONS (10)
  - Pulmonary embolism [Fatal]
  - Multiple fractures [Unknown]
  - Malignant neoplasm progression [Unknown]
  - Renal failure [Unknown]
  - Lymphoedema [Unknown]
  - Trismus [Unknown]
  - Radiation injury [Unknown]
  - Skin toxicity [Unknown]
  - Rash [Unknown]
  - Off label use [Unknown]
